FAERS Safety Report 19002296 (Version 1)
Quarter: 2021Q1

REPORT INFORMATION
  Report Type: Spontaneous
  Country: US (occurrence: US)
  Receive Date: 20210312
  Receipt Date: 20210312
  Transmission Date: 20210420
  Serious: No
  Sender: FDA-Public Use
  Company Number: US-ELI_LILLY_AND_COMPANY-US202103001746

PATIENT
  Age: 43 Year
  Sex: Female

DRUGS (1)
  1. HUMALOG [Suspect]
     Active Substance: INSULIN LISPRO
     Indication: TYPE 2 DIABETES MELLITUS
     Dosage: 11?16 U, TID
     Route: 058
     Dates: start: 2011

REACTIONS (3)
  - Glycosylated haemoglobin increased [Recovering/Resolving]
  - Blood glucose increased [Recovered/Resolved]
  - Patella fracture [Recovering/Resolving]

NARRATIVE: CASE EVENT DATE: 20210104
